FAERS Safety Report 5774332-9 (Version None)
Quarter: 2008Q2

REPORT INFORMATION
  Report Type: 
  Country: None (occurrence: None)
  Receive Date: 20080616
  Receipt Date: 20080606
  Transmission Date: 20081010
  Serious: Yes (Other)
  Sender: FDA-Public Use
  Company Number: PHHY2008CA10420

PATIENT
  Sex: Female

DRUGS (1)
  1. DIOVAN [Suspect]
     Dosage: 80 MG, UNK
     Route: 048

REACTIONS (2)
  - HEPATIC STEATOSIS [None]
  - ULTRASOUND ABDOMEN ABNORMAL [None]
